FAERS Safety Report 8133765-6 (Version None)
Quarter: 2012Q1

REPORT INFORMATION
  Report Type: 
  Country: None (occurrence: None)
  Receive Date: 20120213
  Receipt Date: 20120213
  Transmission Date: 20120608
  Serious: No
  Sender: FDA-Public Use
  Company Number: None

PATIENT
  Sex: Female
  Weight: 45 kg

DRUGS (5)
  1. SEROQUEL [Concomitant]
  2. CYMBALTA [Concomitant]
  3. DIAZEPAM [Concomitant]
  4. NUVARING [Suspect]
     Indication: CONTRACEPTION
     Route: 067
     Dates: start: 20060401, end: 20081001
  5. LYRICA [Concomitant]

REACTIONS (3)
  - DISCOMFORT [None]
  - VAGINAL DISCHARGE [None]
  - MENORRHAGIA [None]
